FAERS Safety Report 24767715 (Version 1)
Quarter: 2024Q4

REPORT INFORMATION
  Report Type: Spontaneous
  Country: US (occurrence: None)
  Receive Date: 20241222
  Receipt Date: 20241222
  Transmission Date: 20250115
  Serious: Yes (Disabling)
  Sender: Public
  Company Number: None

PATIENT
  Sex: 0

DRUGS (1)
  1. CIPROFLOXACIN HYDROCHLORIDE [Suspect]
     Active Substance: CIPROFLOXACIN HYDROCHLORIDE
     Indication: Urinary tract infection
     Dosage: 1 TABLET TWICE A DAY ORAL
     Route: 048
     Dates: start: 20181217

REACTIONS (4)
  - Arthropathy [None]
  - Muscle disorder [None]
  - Connective tissue disorder [None]
  - Nervous system disorder [None]

NARRATIVE: CASE EVENT DATE: 20181218
